FAERS Safety Report 24922092 (Version 1)
Quarter: 2025Q1

REPORT INFORMATION
  Report Type: Other
  Country: US (occurrence: US)
  Receive Date: 20250204
  Receipt Date: 20250204
  Transmission Date: 20250409
  Serious: Yes (Life-Threatening, Other)
  Sender: B BRAUN
  Company Number: US-B.Braun Medical Inc.-2170385

PATIENT
  Age: 16 Year
  Sex: Male

DRUGS (7)
  1. SODIUM CHLORIDE [Suspect]
     Active Substance: SODIUM CHLORIDE
     Indication: Cerebral oedema management
  2. MANNITOL [Suspect]
     Active Substance: MANNITOL
  3. ACETAMINOPHEN [Concomitant]
     Active Substance: ACETAMINOPHEN
  4. HYDROCORTISONE [Concomitant]
     Active Substance: HYDROCORTISONE
  5. MANNITOL [Concomitant]
     Active Substance: MANNITOL
  6. 3% saline [Concomitant]
  7. Insulin drip [Concomitant]

REACTIONS (4)
  - Encephalopathy [Recovered/Resolved]
  - Product administered to patient of inappropriate age [Recovered/Resolved]
  - Off label use [Recovered/Resolved]
  - Osmotic demyelination syndrome [Recovered/Resolved]
